FAERS Safety Report 22080498 (Version 1)
Quarter: 2023Q1

REPORT INFORMATION
  Report Type: Spontaneous
  Country: US (occurrence: US)
  Receive Date: 20230309
  Receipt Date: 20230309
  Transmission Date: 20230418
  Serious: No
  Sender: FDA-Public Use
  Company Number: US-BRISTOL-MYERS SQUIBB COMPANY-2023-034462

PATIENT
  Age: 62 Year
  Sex: Male
  Weight: 94.34 kg

DRUGS (1)
  1. REVLIMID [Suspect]
     Active Substance: LENALIDOMIDE
     Indication: Plasma cell myeloma
     Dosage: FREQ - 2W, 1W OFF
     Route: 048

REACTIONS (4)
  - Dyspnoea [Unknown]
  - Swelling [Unknown]
  - Off label use [Unknown]
  - Condition aggravated [Unknown]
